FAERS Safety Report 9920871 (Version 2)
Quarter: 2015Q2

REPORT INFORMATION
  Report Type: Report from Study
  Country: US (occurrence: US)
  Receive Date: 20140225
  Receipt Date: 20150402
  Transmission Date: 20150821
  Serious: Yes (Death)
  Sender: FDA-Public Use
  Company Number: US-ROCHE-1318696

PATIENT
  Sex: Male
  Weight: 66.74 kg

DRUGS (23)
  1. AVASTIN [Suspect]
     Active Substance: BEVACIZUMAB
     Route: 042
     Dates: start: 20111115
  2. NOVOLIN 70/30 [Concomitant]
     Active Substance: INSULIN HUMAN
     Route: 058
  3. OXALIPLATIN. [Concomitant]
     Active Substance: OXALIPLATIN
     Route: 040
     Dates: start: 20110607
  4. CALCIUM GLUCONATE. [Concomitant]
     Active Substance: CALCIUM GLUCONATE
     Indication: NEUROTOXICITY
     Dosage: PRE AND POST TREATMENT TO PREVENT NEUROTOXICITY
     Route: 042
  5. METHYLPREDNISOLONE SODIUM SUCCINATE. [Concomitant]
     Active Substance: METHYLPREDNISOLONE SODIUM SUCCINATE
     Indication: HYPERSENSITIVITY
     Route: 065
  6. 5-FU [Concomitant]
     Active Substance: FLUOROURACIL
     Route: 040
  7. NYSTATIN. [Concomitant]
     Active Substance: NYSTATIN
     Dosage: SWISH AND SWALLOW
     Route: 048
  8. AVASTIN [Suspect]
     Active Substance: BEVACIZUMAB
     Route: 042
     Dates: start: 20120611
  9. 5-FU [Concomitant]
     Active Substance: FLUOROURACIL
     Route: 042
  10. LEUCOVORIN CALCIUM. [Concomitant]
     Active Substance: LEUCOVORIN CALCIUM
     Route: 040
     Dates: start: 20110607
  11. HEPARIN SODIUM. [Concomitant]
     Active Substance: HEPARIN SODIUM
     Route: 042
     Dates: start: 20111115
  12. DEXAMETHASONE SODIUM PHOSPHATE. [Concomitant]
     Active Substance: DEXAMETHASONE SODIUM PHOSPHATE
     Dosage: AS DIRECTED
     Route: 040
     Dates: start: 20111115
  13. HYDROCORTISONE SODIUM SUCCINATE [Concomitant]
     Active Substance: HYDROCORTISONE SODIUM SUCCINATE
     Indication: HYPERSENSITIVITY
     Route: 065
  14. AVASTIN [Suspect]
     Active Substance: BEVACIZUMAB
     Indication: COLON CANCER METASTATIC
     Route: 042
     Dates: start: 20110607
  15. XELODA [Suspect]
     Active Substance: CAPECITABINE
     Indication: COLON CANCER
     Dosage: DAYS 1-14 THEN OFF FOR 7 DAYS
     Route: 048
  16. OXALIPLATIN. [Concomitant]
     Active Substance: OXALIPLATIN
     Route: 040
     Dates: start: 20111115
  17. LEUCOVORIN CALCIUM. [Concomitant]
     Active Substance: LEUCOVORIN CALCIUM
     Route: 040
  18. AMOXICILLIN. [Concomitant]
     Active Substance: AMOXICILLIN
     Route: 048
     Dates: start: 20111115
  19. TRIPLE MIX MOUTHWASH (NYSTATIN/BENADRYL/LIDOCAINE VISCOUS) [Concomitant]
     Dosage: ONE TEASPOON, SWISH AND SWALLOW QID
     Route: 065
  20. GRANISETRON [Concomitant]
     Active Substance: GRANISETRON
     Dosage: 1000 MCG
     Route: 040
     Dates: start: 20111115
  21. MAGNESIUM SULFATE. [Concomitant]
     Active Substance: MAGNESIUM SULFATE
     Indication: NEUROTOXICITY
     Route: 042
  22. PALONOSETRON [Concomitant]
     Active Substance: PALONOSETRON
     Route: 042
  23. DIPHENHYDRAMINE [Concomitant]
     Active Substance: DIPHENHYDRAMINE
     Indication: HYPERSENSITIVITY
     Route: 042

REACTIONS (8)
  - Anaemia [Unknown]
  - Constipation [Unknown]
  - Malignant ascites [Fatal]
  - Pain [Unknown]
  - Gastrointestinal haemorrhage [Fatal]
  - Gingivitis [Unknown]
  - Leukopenia [Unknown]
  - Respiratory failure [Fatal]
